FAERS Safety Report 20224182 (Version 4)
Quarter: 2022Q1

REPORT INFORMATION
  Report Type: Report from Study
  Country: RU (occurrence: RU)
  Receive Date: 20211223
  Receipt Date: 20220201
  Transmission Date: 20220423
  Serious: Yes (Death, Other)
  Sender: FDA-Public Use
  Company Number: RU-SERVIER-S21014078

PATIENT

DRUGS (16)
  1. PEGASPARGASE [Suspect]
     Active Substance: PEGASPARGASE
     Indication: B-cell type acute leukaemia
     Dosage: 2925 U (2500 U/M?), ON DAY 3
     Route: 042
     Dates: start: 20211202, end: 20211202
  2. DAUNORUBICIN HYDROCHLORIDE [Suspect]
     Active Substance: DAUNORUBICIN HYDROCHLORIDE
     Indication: B-cell type acute leukaemia
     Dosage: 52.65 MG, PRN
     Route: 051
     Dates: start: 20211207, end: 20211221
  3. CYTARABINE [Suspect]
     Active Substance: CYTARABINE
     Indication: B-cell type acute leukaemia
     Dosage: 50 MG, QD
     Route: 037
     Dates: start: 20211208, end: 20211208
  4. VINCRISTINE [Suspect]
     Active Substance: VINCRISTINE
     Indication: B-cell type acute leukaemia
     Dosage: 1.7 MG, PRN
     Route: 051
     Dates: start: 20211207, end: 20211221
  5. DEXAMETHASONE [Suspect]
     Active Substance: DEXAMETHASONE
     Indication: B-cell type acute leukaemia
     Dosage: 2.25 MG, QD
     Route: 048
     Dates: start: 20211130, end: 20211202
  6. DEXAMETHASONE [Suspect]
     Active Substance: DEXAMETHASONE
     Dosage: 3.5 MG, QD
     Route: 048
     Dates: start: 20211202, end: 20211203
  7. DEXAMETHASONE [Suspect]
     Active Substance: DEXAMETHASONE
     Dosage: 5.25 MG, QD
     Route: 048
     Dates: start: 20211203, end: 20211204
  8. DEXAMETHASONE [Suspect]
     Active Substance: DEXAMETHASONE
     Dosage: 5.5 MG, QD
     Route: 048
     Dates: start: 20211204, end: 20211205
  9. DEXAMETHASONE [Suspect]
     Active Substance: DEXAMETHASONE
     Dosage: 6 MG, QD
     Route: 048
     Dates: start: 20211205, end: 20211218
  10. DEXAMETHASONE [Suspect]
     Active Substance: DEXAMETHASONE
     Dosage: 2 MG, QD
     Route: 037
     Dates: start: 20211208, end: 20211208
  11. METHOTREXATE SODIUM [Suspect]
     Active Substance: METHOTREXATE SODIUM
     Indication: B-cell type acute leukaemia
     Dosage: 12 MG, QD
     Route: 037
     Dates: start: 20211208, end: 20211208
  12. TN UNSPECIFIED [Concomitant]
     Indication: Tumour lysis syndrome
     Dosage: 200 MG, BID
     Route: 048
     Dates: start: 20211123, end: 20211221
  13. TN UNSPECIFIED [Concomitant]
     Indication: Prophylaxis
  14. TN UNSPECIFIED [Concomitant]
     Indication: Tumour lysis syndrome
     Dosage: 3615 ML, QD
     Route: 051
     Dates: start: 20211123, end: 20211221
  15. TN UNSPECIFIED [Concomitant]
     Indication: Prophylaxis
  16. TN UNSPECIFIED [Concomitant]
     Indication: Antiemetic supportive care
     Dosage: 4 MG, QID
     Route: 051
     Dates: start: 20211129, end: 20211221

REACTIONS (8)
  - White blood cell count decreased [Not Recovered/Not Resolved]
  - Lymphocyte count decreased [Not Recovered/Not Resolved]
  - Antithrombin III decreased [Not Recovered/Not Resolved]
  - Sepsis [Fatal]
  - Blood bilirubin increased [Not Recovered/Not Resolved]
  - Multiple organ dysfunction syndrome [Not Recovered/Not Resolved]
  - Pneumonia [Not Recovered/Not Resolved]
  - Disseminated intravascular coagulation [Not Recovered/Not Resolved]

NARRATIVE: CASE EVENT DATE: 20211209
